FAERS Safety Report 14264627 (Version 1)
Quarter: 2017Q4

REPORT INFORMATION
  Report Type: Spontaneous
  Country: US (occurrence: US)
  Receive Date: 20171208
  Receipt Date: 20171208
  Transmission Date: 20180321
  Serious: No
  Sender: FDA-Public Use
  Company Number: US-TEVA-2017-US-830178

PATIENT
  Sex: Male

DRUGS (2)
  1. LIDOCPAT-A [Suspect]
     Active Substance: LIDOCAINE
     Indication: BACK PAIN
  2. LIDOCPAT-A [Suspect]
     Active Substance: LIDOCAINE
     Indication: MUSCULOSKELETAL PAIN

REACTIONS (1)
  - Expired product administered [Unknown]
